FAERS Safety Report 20580082 (Version 1)
Quarter: 2022Q1

REPORT INFORMATION
  Report Type: Other
  Country: PL (occurrence: None)
  Receive Date: 20220310
  Receipt Date: 20220310
  Transmission Date: 20220423
  Serious: Yes (Death, Hospitalization)
  Sender: FDA-Public Use
  Company Number: PL-ROCHE-3041560

PATIENT
  Age: 37 Year
  Sex: Male

DRUGS (9)
  1. RITUXIMAB [Suspect]
     Active Substance: RITUXIMAB
     Indication: Chronic lymphocytic leukaemia
     Dosage: 6 CYCLES
     Route: 065
  2. CYCLOPHOSPHAMIDE [Suspect]
     Active Substance: CYCLOPHOSPHAMIDE
     Indication: Chronic lymphocytic leukaemia
     Dosage: 6 CYCLES
     Route: 065
  3. CEFTRIAXONE [Concomitant]
     Active Substance: CEFTRIAXONE
     Indication: Bacterial infection
  4. CEFTAZIDIME [Concomitant]
     Active Substance: CEFTAZIDIME
     Indication: Bacterial infection
  5. AMIKACIN [Concomitant]
     Active Substance: AMIKACIN
     Indication: Bacterial infection
  6. MEROPENEM [Concomitant]
     Active Substance: MEROPENEM
     Indication: Bacterial infection
  7. LEVOFLOXACIN [Concomitant]
     Active Substance: LEVOFLOXACIN
     Indication: Bacterial infection
  8. LINEZOLID [Concomitant]
     Active Substance: LINEZOLID
     Indication: Bacterial infection
  9. SULFAMETHOXAZOLE\TRIMETHOPRIM [Concomitant]
     Active Substance: SULFAMETHOXAZOLE\TRIMETHOPRIM
     Indication: Bacterial infection

REACTIONS (8)
  - Cardiac arrest [Fatal]
  - COVID-19 [Unknown]
  - Respiratory failure [Unknown]
  - Embolism [Unknown]
  - Humoral immune defect [Unknown]
  - Pneumomediastinum [Unknown]
  - Haemophagocytic lymphohistiocytosis [Unknown]
  - Subcutaneous emphysema [Unknown]
